FAERS Safety Report 9402598 (Version 1)
Quarter: 2013Q3

REPORT INFORMATION
  Report Type: Spontaneous
  Country: AU (occurrence: AU)
  Receive Date: 20130716
  Receipt Date: 20130716
  Transmission Date: 20140515
  Serious: Yes (Other)
  Sender: FDA-Public Use
  Company Number: PHHY2013AU074774

PATIENT
  Sex: Female

DRUGS (8)
  1. METARAMINOL [Suspect]
  2. FENTANYL [Suspect]
  3. MIDAZOLAM [Suspect]
  4. CEFAZOLIN SODIUM [Suspect]
  5. PROPOFOL [Suspect]
  6. ATROPINE [Suspect]
  7. HEPARIN SODIUM [Suspect]
  8. PARACETAMOL [Concomitant]

REACTIONS (1)
  - Tongue oedema [Unknown]
